FAERS Safety Report 17457284 (Version 1)
Quarter: 2020Q1

REPORT INFORMATION
  Report Type: Spontaneous
  Country: NL (occurrence: NL)
  Receive Date: 20200225
  Receipt Date: 20200225
  Transmission Date: 20200409
  Serious: Yes (Other)
  Sender: FDA-Public Use
  Company Number: NL-MYLANLABS-2020M1019620

PATIENT
  Sex: Male
  Weight: 55 kg

DRUGS (1)
  1. METHYLPHENIDATE. [Suspect]
     Active Substance: METHYLPHENIDATE
     Indication: ATTENTION DEFICIT/HYPERACTIVITY DISORDER
     Dosage: 10 MICROGRAM, BID (TABLET MET GEREGULEERDE AFGIFTE, 10 MG (MILLIGRAM), 2 KEER PER DAG, 1)
     Dates: start: 2015, end: 20190720

REACTIONS (5)
  - Suicidal ideation [Recovering/Resolving]
  - Depressed mood [Recovered/Resolved]
  - Anxiety [Recovered/Resolved]
  - Rebound effect [Recovered/Resolved]
  - Obsessive-compulsive personality disorder [Recovering/Resolving]
